FAERS Safety Report 18160464 (Version 1)
Quarter: 2020Q3

REPORT INFORMATION
  Report Type: Spontaneous
  Country: US (occurrence: US)
  Receive Date: 20200818
  Receipt Date: 20200818
  Transmission Date: 20201103
  Serious: Yes (Disabling, Other)
  Sender: FDA-Public Use
  Company Number: US-PURDUE-USA-2020-0161495

PATIENT
  Age: 15 Year
  Sex: Male

DRUGS (1)
  1. OXYCONTIN [Suspect]
     Active Substance: OXYCODONE HYDROCHLORIDE
     Indication: PRODUCT USED FOR UNKNOWN INDICATION
     Dosage: UNK
     Route: 048
     Dates: start: 201304

REACTIONS (11)
  - Suicide attempt [Unknown]
  - Disability [Unknown]
  - Schizoaffective disorder [Unknown]
  - Hallucinations, mixed [Unknown]
  - Cognitive disorder [Unknown]
  - Psychotic behaviour [Unknown]
  - Drug use disorder [Unknown]
  - Depression [Unknown]
  - Drug dependence [Unknown]
  - Attention deficit hyperactivity disorder [Unknown]
  - Anxiety disorder [Unknown]
